FAERS Safety Report 13872854 (Version 1)
Quarter: 2017Q3

REPORT INFORMATION
  Report Type: Report from Study
  Country: US (occurrence: US)
  Receive Date: 20170816
  Receipt Date: 20170816
  Transmission Date: 20171127
  Serious: Yes (Other)
  Sender: FDA-Public Use
  Company Number: US-UCBSA-2017031383

PATIENT
  Sex: Male

DRUGS (3)
  1. LEVETIRACETAM. [Suspect]
     Active Substance: LEVETIRACETAM
     Indication: FOCAL DYSCOGNITIVE SEIZURES
     Dosage: UNK
  2. B6 [Concomitant]
     Active Substance: PYRIDOXINE HYDROCHLORIDE
     Indication: MOOD SWINGS
  3. B6 [Concomitant]
     Active Substance: PYRIDOXINE HYDROCHLORIDE
     Indication: ANGER
     Dosage: UNK

REACTIONS (7)
  - Seizure [Unknown]
  - Change in seizure presentation [Unknown]
  - Aggression [Unknown]
  - Mood swings [Unknown]
  - Generalised tonic-clonic seizure [Unknown]
  - Anger [Unknown]
  - Drug ineffective [Unknown]
